FAERS Safety Report 13829285 (Version 3)
Quarter: 2017Q3

REPORT INFORMATION
  Report Type: Spontaneous
  Country: JP (occurrence: JP)
  Receive Date: 20170803
  Receipt Date: 20170815
  Transmission Date: 20171127
  Serious: Yes (Other)
  Sender: FDA-Public Use
  Company Number: JP-PFIZER INC-2017294464

PATIENT
  Age: 57 Year
  Sex: Female

DRUGS (2)
  1. EPADEL /01682401/ [Concomitant]
     Active Substance: ICOSAPENT
     Indication: HYPERLIPIDAEMIA
     Dosage: 900 MG, 2X/DAY
     Route: 048
     Dates: start: 20150808, end: 20170613
  2. LIPITOR [Suspect]
     Active Substance: ATORVASTATIN CALCIUM
     Indication: HYPERLIPIDAEMIA
     Dosage: 10 MG, ONCE DAILY, AT NIGHT
     Route: 048
     Dates: start: 20170520, end: 20170613

REACTIONS (7)
  - Blood triglycerides increased [Recovering/Resolving]
  - Alanine aminotransferase increased [Recovering/Resolving]
  - Liver disorder [Recovering/Resolving]
  - Aspartate aminotransferase increased [Recovering/Resolving]
  - Gamma-glutamyltransferase increased [Recovering/Resolving]
  - Anaemia [Unknown]
  - Back pain [Unknown]

NARRATIVE: CASE EVENT DATE: 20170610
